FAERS Safety Report 5334731-6 (Version None)
Quarter: 2007Q2

REPORT INFORMATION
  Report Type: 
  Country: None (occurrence: None)
  Receive Date: 20070525
  Receipt Date: 20070515
  Transmission Date: 20071010
  Serious: Yes (Hospitalization)
  Sender: FDA-Public Use
  Company Number: ZA-JNJFOC-20070502678

PATIENT
  Sex: Female

DRUGS (4)
  1. TOPAMAX [Suspect]
     Indication: DRUG THERAPY
     Dosage: 75 MG IN AM AND 100 MG IN PM
     Route: 048
  2. FLUOXETINE [Concomitant]
     Indication: EATING DISORDER
     Route: 048
  3. ALZAM [Concomitant]
     Indication: ANXIETY
     Route: 048
  4. LORAMET [Concomitant]
     Indication: SLEEP DISORDER THERAPY
     Route: 065

REACTIONS (2)
  - DRUG EXPOSURE DURING PREGNANCY [None]
  - HOSPITALISATION [None]
